FAERS Safety Report 8759485 (Version 3)
Quarter: 2014Q3

REPORT INFORMATION
  Report Type: Spontaneous
  Country: US (occurrence: US)
  Receive Date: 20120829
  Receipt Date: 20140915
  Transmission Date: 20150326
  Serious: Yes (Other)
  Sender: FDA-Public Use
  Company Number: US-MERCK-1207USA00057

PATIENT
  Sex: Female

DRUGS (1)
  1. FOSAMAX [Suspect]
     Active Substance: ALENDRONATE SODIUM
     Dosage: UNK UNK, QW
     Route: 048

REACTIONS (13)
  - Dental caries [Unknown]
  - Dental care [Unknown]
  - Surgery [Unknown]
  - Endodontic procedure [Unknown]
  - Gingivitis [Unknown]
  - Palatal disorder [Unknown]
  - Tooth extraction [Unknown]
  - Sensitivity of teeth [Unknown]
  - Endodontic procedure [Unknown]
  - Tooth disorder [Unknown]
  - Skin lesion [Unknown]
  - Tooth disorder [Unknown]
  - Tooth disorder [Unknown]

NARRATIVE: CASE EVENT DATE: 20020703
